FAERS Safety Report 20037137 (Version 1)
Quarter: 2021Q4

REPORT INFORMATION
  Report Type: Report from Study
  Country: US (occurrence: US)
  Receive Date: 20211105
  Receipt Date: 20211105
  Transmission Date: 20220303
  Serious: Yes (Death)
  Sender: FDA-Public Use
  Company Number: US-AUROBINDO-AUR-APL-2021-045511

PATIENT
  Age: 40 Year
  Sex: Female
  Weight: 64.4 kg

DRUGS (4)
  1. BELINOSTAT [Suspect]
     Active Substance: BELINOSTAT
     Indication: Breast cancer metastatic
     Dosage: 500 MILLIGRAM/SQ. METER, D1-5, 21D CYCLE
     Route: 042
     Dates: start: 20210830, end: 20210903
  2. BELINOSTAT [Suspect]
     Active Substance: BELINOSTAT
     Indication: HER2 negative breast cancer
  3. TALAZOPARIB [Suspect]
     Active Substance: TALAZOPARIB
     Indication: Breast cancer metastatic
     Dosage: 1 MILLIGRAM, ONCE A DAY
     Route: 048
     Dates: start: 20210830, end: 20210920
  4. TALAZOPARIB [Suspect]
     Active Substance: TALAZOPARIB
     Indication: HER2 negative breast cancer

REACTIONS (1)
  - Disease progression [Fatal]

NARRATIVE: CASE EVENT DATE: 20211013
